FAERS Safety Report 7299372-2 (Version None)
Quarter: 2011Q1

REPORT INFORMATION
  Report Type: 
  Country: None (occurrence: None)
  Receive Date: 20110217
  Receipt Date: 20110210
  Transmission Date: 20110831
  Serious: Yes (Congenital Anomaly)
  Sender: FDA-Public Use
  Company Number: B0682386B

PATIENT
  Sex: Female

DRUGS (4)
  1. ORFIRIL [Suspect]
     Indication: EPILEPSY
     Route: 064
  2. DISIPAL [Suspect]
     Route: 064
  3. TRILAFON [Suspect]
     Indication: EPILEPSY
     Route: 064
  4. LAMICTAL [Suspect]
     Route: 064

REACTIONS (8)
  - EPILEPSY [None]
  - COGNITIVE DISORDER [None]
  - VITAMIN K DEFICIENCY [None]
  - ATTENTION DEFICIT/HYPERACTIVITY DISORDER [None]
  - DRUG WITHDRAWAL SYNDROME NEONATAL [None]
  - MODERATE MENTAL RETARDATION [None]
  - DYSKINESIA [None]
  - SENSORIMOTOR DISORDER [None]
